FAERS Safety Report 4292306-4 (Version None)
Quarter: 2004Q1

REPORT INFORMATION
  Report Type: 
  Country: None (occurrence: None)
  Receive Date: 20040211
  Receipt Date: 20040203
  Transmission Date: 20041129
  Serious: Yes (Other)
  Sender: FDA-Public Use
  Company Number: JP-ROCHE-358393

PATIENT
  Age: 30 Year
  Sex: Female

DRUGS (3)
  1. TAMIFLU [Suspect]
     Route: 048
     Dates: start: 20040127, end: 20040128
  2. ASPIRIN [Concomitant]
  3. STOMILASE [Concomitant]

REACTIONS (1)
  - ATRIAL FIBRILLATION [None]
